FAERS Safety Report 8494272-4 (Version None)
Quarter: 2012Q3

REPORT INFORMATION
  Report Type: 
  Country: None (occurrence: None)
  Receive Date: 20120709
  Receipt Date: 20120706
  Transmission Date: 20120928
  Serious: Yes (Death, Hospitalization, Disabling, Other)
  Sender: FDA-Public Use
  Company Number: PHHY2012NL002216

PATIENT
  Sex: Male

DRUGS (5)
  1. LEUPROLIDE ACETATE [Concomitant]
     Dosage: 30 MG/ 6 MONTHS
  2. ZOMETA [Suspect]
     Dosage: 4 MG/100ML ONCE PER 21 DAYS
     Dates: start: 20111215
  3. ZOMETA [Suspect]
     Dosage: 4 MG/100ML ONCE PER 21 DAYS
     Dates: start: 20120130
  4. ZOMETA [Suspect]
     Indication: PROSTATE CANCER METASTATIC
     Dosage: 4 MG/100ML ONCE PER 21 DAYS
     Dates: start: 20110901
  5. ZOMETA [Suspect]
     Dosage: 4 MG/100ML ONCE PER 21 DAYS
     Dates: start: 20120110

REACTIONS (9)
  - NEOPLASM PROGRESSION [None]
  - FEELING OF DESPAIR [None]
  - TERMINAL STATE [None]
  - SKIN DISCOLOURATION [None]
  - DEATH [None]
  - SPINAL CORD DISORDER [None]
  - NEOPLASM MALIGNANT [None]
  - FATIGUE [None]
  - GENERAL PHYSICAL HEALTH DETERIORATION [None]
